FAERS Safety Report 7075949-4 (Version None)
Quarter: 2010Q4

REPORT INFORMATION
  Report Type: 
  Country: None (occurrence: None)
  Receive Date: 20101101
  Receipt Date: 20101022
  Transmission Date: 20110411
  Serious: No
  Sender: FDA-Public Use
  Company Number: US-BIOGENIDEC-2010BI037318

PATIENT
  Age: 52 Year
  Sex: Female

DRUGS (3)
  1. TYSABRI [Suspect]
     Indication: MULTIPLE SCLEROSIS
     Route: 042
     Dates: start: 20100318
  2. BACLOFEN [Concomitant]
     Indication: MUSCULOSKELETAL STIFFNESS
  3. ZANAFLEX [Concomitant]
     Indication: MUSCULOSKELETAL STIFFNESS
     Dates: end: 20100601

REACTIONS (1)
  - MUSCULOSKELETAL STIFFNESS [None]
